FAERS Safety Report 4917061-3 (Version None)
Quarter: 2006Q1

REPORT INFORMATION
  Report Type: 
  Country: None (occurrence: None)
  Receive Date: 20060216
  Receipt Date: 20060216
  Transmission Date: 20060701
  Serious: Yes (Other)
  Sender: FDA-Public Use
  Company Number: None

PATIENT
  Age: 77 Year
  Sex: Male
  Weight: 88.5 kg

DRUGS (9)
  1. GATIFLOXACIN [Suspect]
  2. MILK OF MAGNESIA TAB [Concomitant]
  3. KETOCONAZOLE [Concomitant]
  4. ASCORBIC ACID [Concomitant]
  5. ACETAMINOPHEN [Concomitant]
  6. OMEPRAZOLE [Concomitant]
  7. CYANOCOBALAMIN [Concomitant]
  8. DILTIAZEM HCL [Concomitant]
  9. IBUPROFEN [Concomitant]

REACTIONS (1)
  - DELIRIUM [None]
